FAERS Safety Report 17117457 (Version 4)
Quarter: 2020Q2

REPORT INFORMATION
  Report Type: Spontaneous
  Country: DE (occurrence: DE)
  Receive Date: 20191205
  Receipt Date: 20200610
  Transmission Date: 20200713
  Serious: Yes (Other)
  Sender: FDA-Public Use
  Company Number: DE-ABBVIE-19K-062-3181313-00

PATIENT
  Sex: Male
  Weight: 74.5 kg

DRUGS (9)
  1. IMBRUVICA [Suspect]
     Active Substance: IBRUTINIB
     Indication: DIFFUSE LARGE B-CELL LYMPHOMA
     Dosage: FURTHER LINE THERAPY,
     Route: 065
     Dates: start: 201508, end: 201510
  2. DOXORUBICIN [Concomitant]
     Active Substance: DOXORUBICIN
     Indication: DIFFUSE LARGE B-CELL LYMPHOMA
     Route: 065
  3. GEMCITABINE. [Suspect]
     Active Substance: GEMCITABINE
     Indication: DIFFUSE LARGE B-CELL LYMPHOMA
     Dosage: 1ST LINE THERAPY, ACCORDING TO GEMTUZUMAB OZOGAMICIN REGIME, 3 CYCLE
     Route: 065
     Dates: start: 201508, end: 201510
  4. OXALIPLATIN. [Suspect]
     Active Substance: OXALIPLATIN
     Indication: DIFFUSE LARGE B-CELL LYMPHOMA
     Dosage: 1ST LINE THERAPY, ACCORDING TO GEMTUZUMAB OZOGAMICIN REGIME, 3 CYCLE
     Route: 065
     Dates: start: 201408, end: 201510
  5. CYCLOPHOSPHAMIDE. [Concomitant]
     Active Substance: CYCLOPHOSPHAMIDE
     Indication: DIFFUSE LARGE B-CELL LYMPHOMA
     Route: 065
  6. MABTHERA [Suspect]
     Active Substance: RITUXIMAB
     Indication: DIFFUSE LARGE B-CELL LYMPHOMA
     Route: 065
     Dates: start: 2014, end: 2015
  7. GEMTUZUMAB [Suspect]
     Active Substance: GEMTUZUMAB OZOGAMICIN
     Indication: DIFFUSE LARGE B-CELL LYMPHOMA
     Dosage: 1ST LINE THERAPY, ACCORDING TO GEMTUZUMAB OZOGAMICIN REGIME, 3 CYCLE
     Route: 065
     Dates: start: 201408, end: 201510
  8. ONCOVIN [Concomitant]
     Active Substance: VINCRISTINE SULFATE
     Indication: DIFFUSE LARGE B-CELL LYMPHOMA
     Route: 065
  9. PREDNISONE. [Concomitant]
     Active Substance: PREDNISONE
     Indication: DIFFUSE LARGE B-CELL LYMPHOMA
     Route: 065

REACTIONS (5)
  - Off label use [Unknown]
  - Product use in unapproved indication [Unknown]
  - Neuropathy peripheral [Unknown]
  - Graft versus host disease [Unknown]
  - Diffuse large B-cell lymphoma recurrent [Unknown]
